FAERS Safety Report 8606480-X (Version None)
Quarter: 2012Q3

REPORT INFORMATION
  Report Type: 
  Country: None (occurrence: None)
  Receive Date: 20120820
  Receipt Date: 20120813
  Transmission Date: 20120928
  Serious: Yes (Other)
  Sender: FDA-Public Use
  Company Number: PHHY2012BR061761

PATIENT
  Sex: Female

DRUGS (4)
  1. METFORMIN HCL [Suspect]
     Indication: DIABETES MELLITUS
     Dosage: 2 DF (METF 850 MG, VILD 50 MG), DAILY
     Route: 048
  2. DIOVAN HCT [Suspect]
     Indication: ARTERIAL OCCLUSIVE DISEASE
     Dosage: 1 DF (VALS 160 MG, HYDR 12.5 MG), QD (IN THE MORNING)
     Route: 048
  3. LIPITOR [Concomitant]
     Indication: BLOOD CHOLESTEROL
     Dosage: 1 DF, QW3
  4. VASTAREL [Concomitant]
     Dosage: 1 DF, BID

REACTIONS (2)
  - UPPER LIMB FRACTURE [None]
  - FALL [None]
